FAERS Safety Report 23307977 (Version 1)
Quarter: 2023Q4

REPORT INFORMATION
  Report Type: Spontaneous
  Country: SE (occurrence: SE)
  Receive Date: 20231218
  Receipt Date: 20231218
  Transmission Date: 20240110
  Serious: Yes (Life-Threatening, Hospitalization, Disabling, Other)
  Sender: FDA-Public Use
  Company Number: None

PATIENT
  Age: 22 Year
  Weight: 64 kg

DRUGS (4)
  1. DIAZEPAM [Suspect]
     Active Substance: DIAZEPAM
     Indication: Involuntary commitment
     Dosage: TIME INTERVAL: TOTAL: DOSE 1
     Route: 054
     Dates: start: 20211009, end: 20211009
  2. ADENOSINE [Suspect]
     Active Substance: ADENOSINE
     Indication: Tachycardia
     Dosage: ADENOSINE WAS GIVEN ON 4 DIFFERENT OCCASIONS DURING THE PERIOD IN DOSES BETWEEN 1ML-5ML, A TOTAL ...
     Route: 030
     Dates: start: 20211010, end: 20211010
  3. ZYPADHERA [Suspect]
     Active Substance: OLANZAPINE PAMOATE
     Indication: Involuntary commitment
     Dosage: TIME INTERVAL: TOTAL: DOSE 1
     Route: 030
     Dates: start: 20211009, end: 20211009
  4. ZUCLOPENTHIXOL ACETATE [Suspect]
     Active Substance: ZUCLOPENTHIXOL ACETATE
     Indication: Involuntary commitment
     Dosage: TIME INTERVAL: TOTAL: DOSE 1
     Route: 030
     Dates: start: 20211009, end: 20211009

REACTIONS (9)
  - Injury [Not Recovered/Not Resolved]
  - Chest pain [Recovered/Resolved]
  - Headache [Recovering/Resolving]
  - Cardiac arrest [Unknown]
  - Dizziness [Recovered/Resolved]
  - Memory impairment [Unknown]
  - Syncope [Unknown]
  - Dyspnoea [Recovered/Resolved]
  - Tachycardia [Recovered/Resolved]

NARRATIVE: CASE EVENT DATE: 20211009
